FAERS Safety Report 21382393 (Version 2)
Quarter: 2022Q3

REPORT INFORMATION
  Report Type: Report from Study
  Country: GB (occurrence: None)
  Receive Date: 20220927
  Receipt Date: 20220930
  Transmission Date: 20221027
  Serious: Yes (Life-Threatening, Hospitalization)
  Sender: FDA-Public Use
  Company Number: GB-ROCHE-3186928

PATIENT
  Age: 63 Year
  Sex: Male

DRUGS (23)
  1. ATEZOLIZUMAB [Suspect]
     Active Substance: ATEZOLIZUMAB
     Indication: Hormone-refractory prostate cancer
     Dosage: ON 14 SEP 2022, THE PATIENT RECEIVED THE MOST RECENT DOSE OF ATEZOLIZUMAB PRIOR TO THE EVENT.
     Route: 041
     Dates: start: 20220623
  2. ATEZOLIZUMAB [Suspect]
     Active Substance: ATEZOLIZUMAB
     Route: 041
     Dates: start: 20220713
  3. ATEZOLIZUMAB [Suspect]
     Active Substance: ATEZOLIZUMAB
     Route: 041
     Dates: start: 20220803
  4. ATEZOLIZUMAB [Suspect]
     Active Substance: ATEZOLIZUMAB
     Route: 041
     Dates: start: 20220824
  5. CABOZANTINIB [Suspect]
     Active Substance: CABOZANTINIB
     Indication: Hormone-refractory prostate cancer
     Dosage: ON 19 SEP 2022, THE PATIENT RECEIVED THE MOST RECENT DOSE OF CABOZANTINIB PRIOR TO THE EVENT
     Route: 048
     Dates: start: 20220623, end: 20220712
  6. CABOZANTINIB [Suspect]
     Active Substance: CABOZANTINIB
     Route: 048
     Dates: start: 20220713, end: 20220802
  7. CABOZANTINIB [Suspect]
     Active Substance: CABOZANTINIB
     Route: 048
     Dates: start: 20220803, end: 20220814
  8. ASPIRIN [Concomitant]
     Active Substance: ASPIRIN
     Dates: start: 20160101
  9. BENDROFLUMETHIAZIDE [Concomitant]
     Active Substance: BENDROFLUMETHIAZIDE
     Dates: start: 20021015
  10. BENZYDAMINE [Concomitant]
     Active Substance: BENZYDAMINE
     Dates: start: 20220401
  11. CODEINE [Concomitant]
     Active Substance: CODEINE
     Dates: start: 20220718
  12. CLOBETASOL [Concomitant]
     Active Substance: CLOBETASOL
     Dates: start: 20220817
  13. DILTIAZEM [Concomitant]
     Active Substance: DILTIAZEM
     Dates: start: 20030201
  14. GABAPENTIN [Concomitant]
     Active Substance: GABAPENTIN
     Dates: start: 20220817
  15. NITROGLYCERIN [Concomitant]
     Active Substance: NITROGLYCERIN
     Dates: start: 20160101
  16. HYPROMELLOSES [Concomitant]
     Active Substance: HYPROMELLOSES
     Dates: start: 20200601
  17. ISOSORBIDE MONONITRATE [Concomitant]
     Active Substance: ISOSORBIDE MONONITRATE
     Dates: start: 20220616
  18. LOSARTAN [Concomitant]
     Active Substance: LOSARTAN
     Dates: start: 20040801
  19. MICONAZOLE [Concomitant]
     Active Substance: MICONAZOLE
     Dates: start: 20180501
  20. UREA [Concomitant]
     Active Substance: UREA
     Dates: start: 20220802
  21. XAILIN [Concomitant]
     Dates: start: 20200601
  22. ZOLADEX [Concomitant]
     Active Substance: GOSERELIN ACETATE
     Dates: start: 20140101
  23. NYSTATIN [Concomitant]
     Active Substance: NYSTATIN
     Dates: start: 20220824

REACTIONS (1)
  - Appendicitis perforated [Recovered/Resolved with Sequelae]

NARRATIVE: CASE EVENT DATE: 20220920
